FAERS Safety Report 10340440 (Version 2)
Quarter: 2014Q3

REPORT INFORMATION
  Report Type: Spontaneous
  Country: BR (occurrence: BR)
  Receive Date: 20140724
  Receipt Date: 20140908
  Transmission Date: 20150326
  Serious: Yes (Death, Hospitalization)
  Sender: FDA-Public Use
  Company Number: BR-ELI_LILLY_AND_COMPANY-BR201407008639

PATIENT
  Age: 72 Year
  Sex: Female
  Weight: 50 kg

DRUGS (9)
  1. PANTOPRAZOLE [Suspect]
     Active Substance: PANTOPRAZOLE SODIUM
     Indication: ABDOMINAL PAIN UPPER
     Dosage: 40 MG, QD
     Route: 048
     Dates: start: 20140626
  2. EFFIENT [Suspect]
     Active Substance: PRASUGREL HYDROCHLORIDE
     Indication: ANTIPLATELET THERAPY
     Dosage: 10 MG, QD
     Route: 048
     Dates: start: 20140619
  3. EFFIENT [Suspect]
     Active Substance: PRASUGREL HYDROCHLORIDE
     Dosage: 5 MG, QD
     Route: 048
  4. ISOSORBIDE [Concomitant]
     Active Substance: ISOSORBIDE
     Dosage: UNK UNK, UNKNOWN
     Route: 065
  5. LOSARTAN [Concomitant]
     Active Substance: LOSARTAN
     Dosage: UNK UNK, UNKNOWN
     Route: 065
  6. TRAMADOL [Concomitant]
     Active Substance: TRAMADOL
     Indication: BACK PAIN
  7. ROSUVASTATIN [Concomitant]
     Active Substance: ROSUVASTATIN
     Dosage: UNK UNK, UNKNOWN
     Route: 065
  8. ACETYLSALICYLIC ACID [Concomitant]
     Active Substance: ASPIRIN
     Dosage: UNK UNK, UNKNOWN
     Route: 065
  9. ACETAMINOPHEN. [Concomitant]
     Active Substance: ACETAMINOPHEN
     Indication: BACK PAIN

REACTIONS (8)
  - Malaise [Not Recovered/Not Resolved]
  - Renal disorder [Not Recovered/Not Resolved]
  - Chest pain [Not Recovered/Not Resolved]
  - Depression [Not Recovered/Not Resolved]
  - Off label use [Not Recovered/Not Resolved]
  - Death [Fatal]
  - Abdominal pain upper [Not Recovered/Not Resolved]
  - Weight decreased [Not Recovered/Not Resolved]

NARRATIVE: CASE EVENT DATE: 20140708
